FAERS Safety Report 8906299 (Version 1)
Quarter: 2012Q4

REPORT INFORMATION
  Report Type: Spontaneous
  Country: IT (occurrence: None)
  Receive Date: 20121107
  Receipt Date: 20121107
  Transmission Date: 20130627
  Serious: Yes (Hospitalization)
  Sender: FDA-Public Use
  Company Number: AUR-APL-2012-04609

PATIENT
  Age: 43 Year
  Sex: Male

DRUGS (5)
  1. MIRTAZAPINE [Suspect]
     Indication: DEPRESSIVE DISORDER
     Route: 048
  2. MIRTAZAPINE [Suspect]
     Indication: DEPRESSIVE DISORDER
     Route: 048
     Dates: start: 20121019, end: 20121019
  3. RIVOTRIL (CLONAZEPAM) [Concomitant]
  4. EUTIMIL (PAROXETINE HYDROCHLORIDE) [Concomitant]
  5. DALMADORM (FLURAZEPAM HYDROCHLORIDE) [Concomitant]

REACTIONS (5)
  - Suicide attempt [None]
  - Intentional self-injury [None]
  - Tachycardia [None]
  - Sopor [None]
  - Somnolence [None]
